FAERS Safety Report 15852715 (Version 2)
Quarter: 2019Q1

REPORT INFORMATION
  Report Type: Spontaneous
  Country: CA (occurrence: CA)
  Receive Date: 20190122
  Receipt Date: 20190211
  Transmission Date: 20190417
  Serious: Yes (Hospitalization, Other)
  Sender: FDA-Public Use
  Company Number: CA-BAYER-2019-009180

PATIENT
  Age: 45 Year
  Sex: Female

DRUGS (1)
  1. LEVONORGESTREL. [Suspect]
     Active Substance: LEVONORGESTREL
     Indication: MENORRHAGIA
     Route: 015

REACTIONS (10)
  - Appendicitis [Recovered/Resolved]
  - Pyrexia [None]
  - Abdominal pain lower [None]
  - Pelvic inflammatory disease [Recovered/Resolved]
  - Purulent discharge [None]
  - Drug ineffective [None]
  - Pelvic adhesions [Recovered/Resolved]
  - Uterine infection [None]
  - Uterine leiomyoma [Recovered/Resolved]
  - Pelvic pain [Recovered/Resolved]
